FAERS Safety Report 13094968 (Version 1)
Quarter: 2017Q1

REPORT INFORMATION
  Report Type: Spontaneous
  Country: US (occurrence: US)
  Receive Date: 20170106
  Receipt Date: 20170106
  Transmission Date: 20170428
  Serious: Yes (Hospitalization)
  Sender: FDA-Public Use
  Company Number: US-BEH-2017076856

PATIENT
  Sex: Female
  Weight: 47.17 kg

DRUGS (26)
  1. HIZENTRA [Suspect]
     Active Substance: HUMAN IMMUNOGLOBULIN G
     Dosage: 6 G, QW
     Route: 058
  2. ZYRTEC [Concomitant]
     Active Substance: CETIRIZINE HYDROCHLORIDE
  3. ELMIRON [Concomitant]
     Active Substance: PENTOSAN POLYSULFATE SODIUM
  4. MUCINEX [Concomitant]
     Active Substance: GUAIFENESIN
  5. BUDESONIDE. [Concomitant]
     Active Substance: BUDESONIDE
  6. VERAMYST [Concomitant]
     Active Substance: FLUTICASONE FUROATE
  7. CARAFATE [Concomitant]
     Active Substance: SUCRALFATE
  8. HIZENTRA [Suspect]
     Active Substance: HUMAN IMMUNOGLOBULIN G
     Dosage: 6 G, UNK
     Route: 058
  9. XANAX [Concomitant]
     Active Substance: ALPRAZOLAM
  10. ACETAMINOPHEN. [Concomitant]
     Active Substance: ACETAMINOPHEN
  11. HIZENTRA [Suspect]
     Active Substance: HUMAN IMMUNOGLOBULIN G
     Indication: IMMUNODEFICIENCY COMMON VARIABLE
     Dosage: 6 G, UNK
     Route: 058
     Dates: start: 20160812
  12. COREG [Concomitant]
     Active Substance: CARVEDILOL
  13. PULMICORT TURBUHALER [Concomitant]
     Active Substance: BUDESONIDE
  14. SPIRIVA [Concomitant]
     Active Substance: TIOTROPIUM BROMIDE MONOHYDRATE
  15. EPIPEN [Concomitant]
     Active Substance: EPINEPHRINE
  16. LOSARTAN. [Concomitant]
     Active Substance: LOSARTAN
  17. TRAMADOL. [Concomitant]
     Active Substance: TRAMADOL
  18. CYANOCOBALAMIN. [Concomitant]
     Active Substance: CYANOCOBALAMIN
  19. AMLODIPINE [Concomitant]
     Active Substance: AMLODIPINE BESYLATE
  20. ASPIRIN. [Concomitant]
     Active Substance: ASPIRIN
  21. VITAMIN E                          /00110501/ [Concomitant]
     Active Substance: TOCOPHEROL
  22. BROVANA [Concomitant]
     Active Substance: ARFORMOTEROL TARTRATE
  23. DEXILANT [Concomitant]
     Active Substance: DEXLANSOPRAZOLE
  24. BENADRYL [Concomitant]
     Active Substance: DIPHENHYDRAMINE HYDROCHLORIDE
  25. SINGULAIR [Concomitant]
     Active Substance: MONTELUKAST SODIUM
  26. ACIDOPHILUS [Concomitant]
     Active Substance: LACTOBACILLUS ACIDOPHILUS

REACTIONS (2)
  - Atrial fibrillation [Unknown]
  - Left atrial appendage occlusion [Unknown]
